FAERS Safety Report 11743828 (Version 2)
Quarter: 2016Q1

REPORT INFORMATION
  Report Type: Spontaneous
  Country: US (occurrence: US)
  Receive Date: 20151116
  Receipt Date: 20160211
  Transmission Date: 20160525
  Serious: Yes (Other)
  Sender: FDA-Public Use
  Company Number: US-AMNEAL PHARMACEUTICALS-2015AMN00184

PATIENT
  Age: 56 Year
  Sex: Female
  Weight: 43.84 kg

DRUGS (9)
  1. SPIRONOLACTONE. [Suspect]
     Active Substance: SPIRONOLACTONE
     Indication: ASCITES
  2. SPIRONOLACTONE. [Suspect]
     Active Substance: SPIRONOLACTONE
     Indication: HEPATIC CIRRHOSIS
     Dosage: 300 MG, 1X/DAY, IN THE MORNING
     Route: 048
     Dates: start: 201411
  3. LACTULOSE SOLUTION [Concomitant]
     Active Substance: LACTULOSE
     Indication: HEPATIC CIRRHOSIS
     Dosage: 2 TBSP, 3X/DAY
     Dates: start: 201411
  4. SPIRINOLACTONE (QUALITEST PHARMACEUTICALS) [Suspect]
     Active Substance: SPIRONOLACTONE
     Indication: HEPATIC CIRRHOSIS
     Dosage: UNK
     Dates: start: 201411, end: 201510
  5. FUROSEMIDE. [Suspect]
     Active Substance: FUROSEMIDE
     Indication: ASCITES
     Dosage: 60 MG, 1X/DAY
     Dates: start: 201411
  6. SPIRINOLACTONE (QUALITEST PHARMACEUTICALS) [Suspect]
     Active Substance: SPIRONOLACTONE
     Indication: ASCITES
  7. OMEPRAZOLE. [Concomitant]
     Active Substance: OMEPRAZOLE
     Dosage: 40 MG, 1X/DAY
     Dates: start: 201412
  8. ALDACTONE [Suspect]
     Active Substance: SPIRONOLACTONE
     Indication: HEPATIC CIRRHOSIS
     Dosage: 300 MG, 1X/DAY,IN THE MORNING
     Route: 048
     Dates: start: 201410
  9. XIFAXAN [Concomitant]
     Active Substance: RIFAXIMIN
     Dosage: 550 MG, 2X/DAY
     Dates: start: 201501

REACTIONS (2)
  - Throat cancer [Unknown]
  - Neck mass [Recovered/Resolved]

NARRATIVE: CASE EVENT DATE: 201506
